FAERS Safety Report 4679049-X (Version None)
Quarter: 2005Q2

REPORT INFORMATION
  Report Type: 
  Country: None (occurrence: None)
  Receive Date: 20050527
  Receipt Date: 20050516
  Transmission Date: 20051028
  Serious: Yes (Disabling, Other)
  Sender: FDA-Public Use
  Company Number: 2005059871

PATIENT
  Age: 84 Year
  Sex: Female
  Weight: 63.5036 kg

DRUGS (9)
  1. BEXTRA [Suspect]
     Indication: ARTHRITIS
     Dosage: 10 MG(10 MG), ORAL
     Route: 048
  2. BEXTRA [Suspect]
     Indication: BACK PAIN
     Dosage: 10 MG(10 MG), ORAL
     Route: 048
  3. ARICEPT [Concomitant]
  4. ALL OTHER THERAPEUTIC PRODUCTS (ALL OTHER THERAPEUTIC PRODUCTS) [Concomitant]
  5. ATENOLOL [Concomitant]
  6. LEVOXYL [Concomitant]
  7. KLOR-CON [Concomitant]
  8. FOSAMAX 9ALENDRONATE SODIUM) [Concomitant]
  9. MEMANTINE HCL [Concomitant]

REACTIONS (5)
  - BLINDNESS [None]
  - BODY HEIGHT DECREASED [None]
  - DEMENTIA [None]
  - RETINAL INFARCTION [None]
  - SPINAL COMPRESSION FRACTURE [None]
